FAERS Safety Report 22595338 (Version 1)
Quarter: 2023Q2

REPORT INFORMATION
  Report Type: Report from Study
  Country: CA (occurrence: None)
  Receive Date: 20230613
  Receipt Date: 20230613
  Transmission Date: 20230722
  Serious: Yes (Other)
  Sender: FDA-Public Use
  Company Number: 2023A132841

PATIENT
  Sex: Female

DRUGS (5)
  1. TEZSPIRE [Suspect]
     Active Substance: TEZEPELUMAB-EKKO
     Indication: Asthma
     Route: 058
     Dates: start: 20221213
  2. VENTOLIN [Concomitant]
     Active Substance: ALBUTEROL SULFATE
     Dosage: 1 PUFF, PRN
     Dates: start: 2012
  3. SPIRIVA RESPIMAT [Concomitant]
     Active Substance: TIOTROPIUM BROMIDE
     Dosage: 2 INH, OD
     Dates: start: 2020
  4. SYMBICORT [Concomitant]
     Active Substance: BUDESONIDE\FORMOTEROL FUMARATE DIHYDRATE
     Dosage: 2 PUFFS, BID + PRN
     Dates: start: 2012
  5. PREDNISONE [Concomitant]
     Active Substance: PREDNISONE

REACTIONS (1)
  - Respiratory tract infection [Recovered/Resolved]
